FAERS Safety Report 11999020 (Version 1)
Quarter: 2016Q1

REPORT INFORMATION
  Report Type: Spontaneous
  Country: US (occurrence: None)
  Receive Date: 20160203
  Receipt Date: 20160203
  Transmission Date: 20160526
  Serious: Yes (Other)
  Sender: FDA-Public Use
  Company Number: None

PATIENT
  Age: 75 Year
  Sex: Male

DRUGS (6)
  1. METAMUCIL [Concomitant]
     Active Substance: PLANTAGO SEED
  2. XARELTO [Suspect]
     Active Substance: RIVAROXABAN
     Indication: ATRIAL FIBRILLATION
     Dosage: 20 MG, 30, 1/DAY, MOUTH
     Dates: start: 2014, end: 20151224
  3. DILTIAZEM [Concomitant]
     Active Substance: DILTIAZEM
  4. XARELTO [Concomitant]
     Active Substance: RIVAROXABAN
  5. DILTIAZEM [Concomitant]
     Active Substance: DILTIAZEM
  6. METAMUCIL [Concomitant]
     Active Substance: PLANTAGO SEED

REACTIONS (1)
  - Haematochezia [None]

NARRATIVE: CASE EVENT DATE: 20151224
